FAERS Safety Report 24980516 (Version 1)
Quarter: 2025Q1

REPORT INFORMATION
  Report Type: Spontaneous
  Country: CA (occurrence: CA)
  Receive Date: 20250218
  Receipt Date: 20250218
  Transmission Date: 20250409
  Serious: Yes (Other)
  Sender: ROCHE
  Company Number: CA-002147023-NVSC2025CA023789

PATIENT
  Age: 30 Year
  Sex: Female

DRUGS (9)
  1. OMALIZUMAB [Suspect]
     Active Substance: OMALIZUMAB
     Indication: Chronic spontaneous urticaria
     Dosage: 300 MG, Q4W
     Route: 050
  2. BENADRYL [Concomitant]
     Active Substance: DIPHENHYDRAMINE HYDROCHLORIDE
     Indication: Chronic spontaneous urticaria
     Dosage: 1 DOSAGE FORM, QD
     Route: 065
  3. BILASTINE [Concomitant]
     Active Substance: BILASTINE
     Indication: Chronic spontaneous urticaria
     Dosage: 3 DOSAGE FORM, QD
     Route: 050
  4. EPINEPHRINE [Concomitant]
     Active Substance: EPINEPHRINE
     Indication: Anaphylactic reaction
     Route: 050
  5. FAMOTIDINE [Concomitant]
     Active Substance: FAMOTIDINE
     Indication: Chronic spontaneous urticaria
     Dosage: 2 DOSAGE FORM, QD
     Route: 065
  6. MONTELUKAST [Concomitant]
     Active Substance: MONTELUKAST
     Indication: Chronic spontaneous urticaria
     Dosage: 1 DOSAGE FORM, QD
     Route: 065
  7. PREDNISONE [Concomitant]
     Active Substance: PREDNISONE
     Indication: Chronic spontaneous urticaria
     Dosage: 1 DOSAGE FORM, QD
     Route: 050
  8. SPIRIVA [Concomitant]
     Active Substance: TIOTROPIUM BROMIDE MONOHYDRATE
     Indication: Chronic spontaneous urticaria
     Dosage: 2 DOSAGE FORM, QD
     Route: 050
  9. VENTOLIN [Concomitant]
     Active Substance: ALBUTEROL SULFATE
     Indication: Chronic spontaneous urticaria
     Dosage: 16 DOSAGE FORM, QD
     Route: 065

REACTIONS (4)
  - Asthenia [Unknown]
  - Cellulitis [Unknown]
  - Illness [Unknown]
  - Inappropriate schedule of product administration [Unknown]
